FAERS Safety Report 9154796 (Version 1)
Quarter: 2013Q1

REPORT INFORMATION
  Report Type: Spontaneous
  Country: US (occurrence: None)
  Receive Date: 20130205
  Receipt Date: 20130205
  Transmission Date: 20140127
  Serious: Yes (Other)
  Sender: FDA-Public Use
  Company Number: DSA_60962_2012

PATIENT
  Sex: Female

DRUGS (1)
  1. XENAZINE 12.5 MG (NOT SPECIFIED) [Suspect]
     Indication: HUNTINGTON^S DISEASE
     Dosage: ( 3 TALETS IN THE MORNING, 3 TABLETS IN THE AFTERNOON AND 2 TABLETS IN THE EVENING ORAL)?
     Route: 048
     Dates: start: 20120714

REACTIONS (5)
  - Fall [None]
  - Nasopharyngitis [None]
  - Head injury [None]
  - Laceration [None]
  - Headache [None]
